FAERS Safety Report 8508249-3 (Version None)
Quarter: 2012Q3

REPORT INFORMATION
  Report Type: 
  Country: None (occurrence: None)
  Receive Date: 20120713
  Receipt Date: 20070226
  Transmission Date: 20120928
  Serious: Yes (Other)
  Sender: FDA-Public Use
  Company Number: CO-PFIZER INC-2012168103

PATIENT
  Age: 63 Year
  Sex: Female

DRUGS (8)
  1. GLIBENCLAMIDE [Concomitant]
     Dosage: 5 MG, EVERY 24 HOURS
  2. ACURETIC [Suspect]
     Dosage: [QUINAPRIL HCL 20]/[HYDROCHLOROTHIAZIDE 12.5MG], EVERY 12 HOURS
  3. AMLODIPINE [Concomitant]
     Dosage: 5 MG, EVERY 12 HOURS
  4. METFORMIN [Concomitant]
     Dosage: 850 MG, EVERY 12 HOURS
  5. OLMESARTAN MEDOXOMIL AND HYDROCHLOROTHIZIDE [Suspect]
     Dosage: [OLMESARTAN MEDOXOMIL 20]/[HYDROCHLOROTHIAZIDE 12.5 MG], EVERY 12 HOURS
  6. LIPITOR [Suspect]
     Dosage: 10 MG, EVERY 12 HOURS
  7. ACETYLSALICYLIC ACID [Concomitant]
     Dosage: 100 MG EVERY 24 HOURS
  8. GLIBENCLAMIDE [Concomitant]
     Dosage: 5 MG, EVERY 12 HOURS

REACTIONS (5)
  - OBESITY [None]
  - DYSPNOEA [None]
  - CEREBROVASCULAR ACCIDENT [None]
  - DYSPNOEA EXERTIONAL [None]
  - PAIN IN EXTREMITY [None]
